FAERS Safety Report 4370219-7 (Version None)
Quarter: 2004Q2

REPORT INFORMATION
  Report Type: 
  Country: None (occurrence: None)
  Receive Date: 20040603
  Receipt Date: 20040415
  Transmission Date: 20050107
  Serious: Yes (Other)
  Sender: FDA-Public Use
  Company Number: US-BRISTOL-MYERS SQUIBB COMPANY-12561783

PATIENT
  Age: 12 Year
  Sex: Male
  Weight: 100 kg

DRUGS (3)
  1. ABILIFY [Suspect]
     Indication: AUTISM
     Dosage: DOSAGE VARIED FROM 5 MG/DAY TO 15 MG/DAY.
     Route: 048
  2. CONCERTA [Concomitant]
  3. CLONIDINE HCL [Concomitant]
     Dosage: BEING WEANED; CURRENTLY ON 0.2-0.4 MG/DAY, BUT HAS BEEN ON DOSE TWICE AS HIGH IN THE PAST.

REACTIONS (7)
  - AGGRESSION [None]
  - BLOOD ALKALINE PHOSPHATASE INCREASED [None]
  - DIABETES MELLITUS [None]
  - DRUG INEFFECTIVE [None]
  - PLATELET COUNT INCREASED [None]
  - STARING [None]
  - WEIGHT DECREASED [None]
